FAERS Safety Report 8079182-9 (Version None)
Quarter: 2012Q1

REPORT INFORMATION
  Report Type: 
  Country: None (occurrence: None)
  Receive Date: 20120128
  Receipt Date: 20110824
  Transmission Date: 20120608
  Serious: No
  Sender: FDA-Public Use
  Company Number: US-ABBOTT-11P-163-0845423-00

PATIENT
  Sex: Male
  Weight: 74.91 kg

DRUGS (5)
  1. HUMIRA [Suspect]
     Dosage: 2ND LOADING DOSE, ONCE
     Route: 058
     Dates: start: 20110819, end: 20110819
  2. HUMIRA [Suspect]
     Dosage: 1ST LOADING DOSE, ONCE
     Dates: start: 20110804, end: 20110804
  3. MERCAPTOPURINE [Concomitant]
     Indication: CROHN'S DISEASE
  4. HUMIRA [Suspect]
     Indication: CROHN'S DISEASE
     Dates: start: 20110101
  5. UNKNOWN VITAMINS [Concomitant]
     Indication: VITAMIN SUPPLEMENTATION

REACTIONS (2)
  - FATIGUE [None]
  - SOMNOLENCE [None]
